FAERS Safety Report 16850840 (Version 1)
Quarter: 2019Q3

REPORT INFORMATION
  Report Type: Spontaneous
  Country: US (occurrence: US)
  Receive Date: 20190925
  Receipt Date: 20190925
  Transmission Date: 20191005
  Serious: No
  Sender: FDA-Public Use
  Company Number: US-THERAPEUTICSMD-2019TMD01439

PATIENT
  Age: 72 Year
  Sex: Female
  Weight: 59.86 kg

DRUGS (11)
  1. BERBERINE [Concomitant]
     Active Substance: BERBERINE
     Dosage: 1000 MG, 1X/DAY
  2. IMVEXXY [Suspect]
     Active Substance: ESTRADIOL
     Indication: URINARY TRACT DISCOMFORT
     Dosage: 10 ?G
     Dates: start: 201902, end: 201902
  3. AMLODIPINE [Concomitant]
     Active Substance: AMLODIPINE BESYLATE
     Dosage: 5 MG, 1X/DAY
  4. PROTONIX [Concomitant]
     Active Substance: PANTOPRAZOLE SODIUM
     Dosage: 40 MG, AS NEEDED
  5. IMVEXXY [Suspect]
     Active Substance: ESTRADIOL
     Dosage: 10 ?G, 2X/WEEK
     Dates: start: 2019, end: 2019
  6. ZETIA [Concomitant]
     Active Substance: EZETIMIBE
     Dosage: 10 MG, 3X/WEEK
  7. CITRUS AND BERGAMOT [Concomitant]
     Dosage: 500 MG, 2X/DAY
  8. ALOE VERA [Concomitant]
     Active Substance: ALOE VERA LEAF
     Dosage: 2 TABLETS, 1X/DAY
  9. SUPER K [Concomitant]
     Dosage: UNK
  10. NUTRACEUTICALS [Concomitant]
  11. VITAMIN D [Concomitant]
     Active Substance: VITAMIN D NOS
     Dosage: 5000 UNK, EVERY OTHER DAY

REACTIONS (2)
  - Drug ineffective for unapproved indication [Recovered/Resolved]
  - Urinary tract discomfort [Recovering/Resolving]

NARRATIVE: CASE EVENT DATE: 201902
